FAERS Safety Report 21363220 (Version 1)
Quarter: 2022Q3

REPORT INFORMATION
  Report Type: Spontaneous
  Country: US (occurrence: None)
  Receive Date: 20220921
  Receipt Date: 20220921
  Transmission Date: 20221027
  Serious: No
  Sender: FDA-Public Use
  Company Number: None

PATIENT
  Age: 50 Year
  Sex: Female
  Weight: 65.77 kg

DRUGS (1)
  1. DITROPAN XL [Suspect]
     Active Substance: OXYBUTYNIN CHLORIDE

REACTIONS (2)
  - Dry mouth [None]
  - Dysphagia [None]
